FAERS Safety Report 23704385 (Version 1)
Quarter: 2024Q2

REPORT INFORMATION
  Report Type: Report from Study
  Country: GR (occurrence: GR)
  Receive Date: 20240404
  Receipt Date: 20240404
  Transmission Date: 20240715
  Serious: Yes (Other)
  Sender: FDA-Public Use
  Company Number: GR-CELLTRION INC.-2023GR018531

PATIENT

DRUGS (3)
  1. INFLIXIMAB [Suspect]
     Active Substance: INFLIXIMAB
     Indication: Crohn^s disease
     Dosage: 400 MG INDUCTION SCHEME
     Dates: start: 20230825, end: 20231102
  2. INFLIXIMAB [Suspect]
     Active Substance: INFLIXIMAB
     Dosage: 400 MG INDUCTION SCHEME
     Dates: start: 20230919
  3. INFLIXIMAB [Suspect]
     Active Substance: INFLIXIMAB
     Indication: Crohn^s disease
     Dosage: 120 MG, EVERY TWO WEEKS (THE PATIENT HAD ALREADY RECEIVED 8 INJECTIONS OF REMSIMA)
     Route: 058
     Dates: start: 202312

REACTIONS (4)
  - Crohn^s disease [Unknown]
  - Therapy interrupted [Unknown]
  - Overdose [Unknown]
  - Intentional product use issue [Unknown]

NARRATIVE: CASE EVENT DATE: 20230919
